FAERS Safety Report 19483519 (Version 1)
Quarter: 2021Q3

REPORT INFORMATION
  Report Type: Spontaneous
  Country: DE (occurrence: DE)
  Receive Date: 20210701
  Receipt Date: 20210701
  Transmission Date: 20211014
  Serious: Yes (Other)
  Sender: FDA-Public Use
  Company Number: DE-PFIZER INC-2021733089

PATIENT
  Age: 82 Year
  Sex: Female

DRUGS (1)
  1. TAFAMIDIS [Suspect]
     Active Substance: TAFAMIDIS MEGLUMINE
     Dosage: 61 MG
     Dates: start: 202003

REACTIONS (6)
  - Dyspnoea [Unknown]
  - Pulmonary hypertension [Unknown]
  - Tachyarrhythmia [Unknown]
  - Pleural effusion [Unknown]
  - Cardiac failure [Unknown]
  - Syncope [Unknown]

NARRATIVE: CASE EVENT DATE: 202004
